FAERS Safety Report 20923519 (Version 1)
Quarter: 2022Q2

REPORT INFORMATION
  Report Type: Spontaneous
  Country: US (occurrence: None)
  Receive Date: 20220606
  Receipt Date: 20220606
  Transmission Date: 20220720
  Serious: Yes (Death)
  Sender: FDA-Public Use
  Company Number: None

PATIENT
  Age: 67 Year
  Sex: Male
  Weight: 73.71 kg

DRUGS (17)
  1. CAPECITABINE [Suspect]
     Active Substance: CAPECITABINE
     Indication: Pancreatic carcinoma
     Dosage: FREQUENCY : TWICE A DAY;?
     Route: 048
  2. TEMOZOLOMIDE [Suspect]
     Active Substance: TEMOZOLOMIDE
     Indication: Pancreatic carcinoma
     Dosage: FREQUENCY : DAILY;?
     Route: 048
  3. ALEVE-D [Concomitant]
  4. AMLODIPINE [Concomitant]
  5. ATORVASTATIN [Concomitant]
     Active Substance: ATORVASTATIN
  6. EFUDEX [Concomitant]
     Active Substance: FLUOROURACIL
  7. ELIQUIS [Concomitant]
     Active Substance: APIXABAN
  8. HYDRALAZINE [Concomitant]
  9. LISINOPRIL [Concomitant]
  10. LUNESTA [Concomitant]
  11. METOPROLOL [Concomitant]
  12. ONDANSENTRON [Concomitant]
  13. PROCHLORPERAZINE [Concomitant]
  14. SIMVASTATIN [Concomitant]
     Active Substance: SIMVASTATIN
  15. SPIRONOLACTONE [Concomitant]
     Active Substance: SPIRONOLACTONE
  16. TAMSULOSIN [Concomitant]
     Active Substance: TAMSULOSIN
  17. TUMS [Concomitant]
     Active Substance: CALCIUM CARBONATE

REACTIONS (1)
  - Death [None]

NARRATIVE: CASE EVENT DATE: 20220531
